FAERS Safety Report 8961907 (Version 1)
Quarter: 2012Q4

REPORT INFORMATION
  Report Type: 
  Country: US (occurrence: US)
  Receive Date: 20121212
  Receipt Date: 20121212
  Transmission Date: 20130627
  Serious: Yes (Hospitalization)
  Sender: FDA-Public Use
  Company Number: US-AMGEN-USASP2012079590

PATIENT

DRUGS (1)
  1. ENBREL [Suspect]
     Dosage: 25 mg, biweekly
     Route: 064
     Dates: start: 19981101, end: 2002

REACTIONS (1)
  - Breech presentation [Recovered/Resolved]
